FAERS Safety Report 15710046 (Version 2)
Quarter: 2018Q4

REPORT INFORMATION
  Report Type: Spontaneous
  Country: NL (occurrence: NL)
  Receive Date: 20181211
  Receipt Date: 20181224
  Transmission Date: 20190205
  Serious: Yes (Hospitalization, Other)
  Sender: FDA-Public Use
  Company Number: PHHY2016NL164030

PATIENT
  Age: 67 Year
  Sex: Male
  Weight: 76 kg

DRUGS (7)
  1. OXALIPLATIN. [Suspect]
     Active Substance: OXALIPLATIN
     Indication: OESOPHAGEAL ADENOCARCINOMA
     Dosage: 100 MG/M2(ON DAY 1 IN THREE-WEEK),
     Route: 042
     Dates: start: 20140212
  2. XELODA [Suspect]
     Active Substance: CAPECITABINE
     Dosage: 850 MG/M2 (DAYS 1-14) STANDARD DOSE IS 1250 MG/M2 TREATMENT 1: HAD TO BE DISCONTINUED ON DAY 11 OF C
     Route: 048
     Dates: start: 20140212, end: 20140218
  3. XELODA [Suspect]
     Active Substance: CAPECITABINE
     Dosage: TREATMENT 2: AN A PRIORI 36 % REDUCED DOSE WAS NOT TOLERATED
     Route: 048
  4. AVASTIN [Suspect]
     Active Substance: BEVACIZUMAB
     Dosage: ON DAY 1 IN THREE-WEEK CYCLE
     Route: 042
     Dates: start: 20140212, end: 20140212
  5. AVASTIN [Suspect]
     Active Substance: BEVACIZUMAB
     Indication: OESOPHAGEAL ADENOCARCINOMA
     Dosage: 7.5 MG/M2, UNK(ON DAY 1 IN THREE-WEEK CYCLE)
     Route: 042
     Dates: start: 20140212, end: 20140212
  6. DOCETAXEL. [Suspect]
     Active Substance: DOCETAXEL
     Indication: OESOPHAGEAL ADENOCARCINOMA
     Dosage: 50 MG/M2(ON DAY 1 IN THREE-WEEK),
     Route: 042
     Dates: start: 20140212, end: 2014
  7. XELODA [Suspect]
     Active Substance: CAPECITABINE
     Indication: OESOPHAGEAL ADENOCARCINOMA
     Dosage: 800 MG/M2, BID
     Route: 048

REACTIONS (3)
  - Fatigue [Recovered/Resolved]
  - Pyrexia [Unknown]
  - Neutropenia [Unknown]

NARRATIVE: CASE EVENT DATE: 20140222
